FAERS Safety Report 19456978 (Version 1)
Quarter: 2021Q2

REPORT INFORMATION
  Report Type: Spontaneous
  Country: US (occurrence: US)
  Receive Date: 20210624
  Receipt Date: 20210624
  Transmission Date: 20210717
  Serious: No
  Sender: FDA-Public Use
  Company Number: US-ALLERGAN-2032637US

PATIENT
  Age: 56 Year
  Sex: Female

DRUGS (3)
  1. CRINONE [Suspect]
     Active Substance: PROGESTERONE
     Indication: PROGESTERONE DECREASED
     Dosage: UNK
  2. VIVELLE?DOT [Concomitant]
     Active Substance: ESTRADIOL
  3. PROGESTERONE. [Concomitant]
     Active Substance: PROGESTERONE
     Dosage: 100 MG

REACTIONS (1)
  - Off label use [Unknown]
